FAERS Safety Report 4896764-3 (Version None)
Quarter: 2006Q1

REPORT INFORMATION
  Report Type: 
  Country: None (occurrence: None)
  Receive Date: 20060126
  Receipt Date: 20060109
  Transmission Date: 20060701
  Serious: Yes (Hospitalization)
  Sender: FDA-Public Use
  Company Number: S06-FRA-00081-01

PATIENT
  Age: 90 Year
  Sex: Female

DRUGS (6)
  1. MEMANTINE HCL [Suspect]
     Dosage: 10 MG QD PO
     Route: 048
     Dates: start: 20050624, end: 20051117
  2. RISPERDAL [Suspect]
     Dosage: 1 MG QD PO
     Route: 048
     Dates: start: 20050706, end: 20051117
  3. ARICEPT [Concomitant]
  4. CITALOPRAM HYDROBROMIDE [Concomitant]
  5. LIPANTHYL [Concomitant]
  6. ALDACTONE [Concomitant]

REACTIONS (4)
  - BLOOD CREATINE INCREASED [None]
  - DISTURBANCE IN ATTENTION [None]
  - FALL [None]
  - SOMNOLENCE [None]
